FAERS Safety Report 6221587-2 (Version None)
Quarter: 2009Q2

REPORT INFORMATION
  Report Type: 
  Country: None (occurrence: None)
  Receive Date: 20090608
  Receipt Date: 20090528
  Transmission Date: 20091009
  Serious: Yes (Hospitalization)
  Sender: FDA-Public Use
  Company Number: GXKR2009TW06287

PATIENT
  Age: 43 Year
  Sex: Female

DRUGS (2)
  1. METFORMIN HCL [Suspect]
     Indication: INCORRECT DOSE ADMINISTERED
     Dosage: 500 MG, BID;
  2. METFORMIN HCL [Suspect]
     Indication: TYPE 2 DIABETES MELLITUS
     Dosage: 500 MG, BID;

REACTIONS (14)
  - BLOOD PRESSURE DECREASED [None]
  - DEPRESSED LEVEL OF CONSCIOUSNESS [None]
  - DEPRESSED MOOD [None]
  - HAEMODIALYSIS [None]
  - HYPERKALAEMIA [None]
  - HYPOGLYCAEMIA [None]
  - HYPOTHERMIA [None]
  - INTENTIONAL OVERDOSE [None]
  - LACTIC ACIDOSIS [None]
  - METABOLIC ACIDOSIS [None]
  - RENAL FAILURE [None]
  - RESPIRATORY FAILURE [None]
  - SUICIDE ATTEMPT [None]
  - TACHYCARDIA [None]
